FAERS Safety Report 25942901 (Version 1)
Quarter: 2025Q4

REPORT INFORMATION
  Report Type: Spontaneous
  Country: US (occurrence: US)
  Receive Date: 20251021
  Receipt Date: 20251021
  Transmission Date: 20260118
  Serious: Yes (Other)
  Sender: SHILPA MEDICARE
  Company Number: US-KOANAAP-SML-US-2025-00498

PATIENT
  Age: 70 Year
  Sex: Male

DRUGS (2)
  1. AZACITIDINE [Suspect]
     Active Substance: AZACITIDINE
     Indication: Acute myeloid leukaemia
     Dosage: AZACITIDINE 75MG/M2 ON DAYS 1-7.
  2. VENETOCLAX [Suspect]
     Active Substance: VENETOCLAX
     Indication: Acute myeloid leukaemia
     Dosage: VENETOCLAX 400MG DAILY IN A 28-DAY CYCLE, WITH A RAMP-UP DOSE OF VENETOCLAX USED.

REACTIONS (4)
  - Acute myeloid leukaemia recurrent [Unknown]
  - Gene mutation [Unknown]
  - Drug ineffective [Unknown]
  - Fatigue [Unknown]
